FAERS Safety Report 14258367 (Version 1)
Quarter: 2017Q4

REPORT INFORMATION
  Report Type: Spontaneous
  Country: US (occurrence: US)
  Receive Date: 20171206
  Receipt Date: 20171206
  Transmission Date: 20180321
  Serious: Yes (Life-Threatening, Hospitalization, Disabling)
  Sender: FDA-Public Use
  Company Number: None

PATIENT
  Age: 69 Year
  Sex: Female
  Weight: 30 kg

DRUGS (12)
  1. DEXILANT [Concomitant]
     Active Substance: DEXLANSOPRAZOLE
  2. ACETAMINOPHEN. [Concomitant]
     Active Substance: ACETAMINOPHEN
  3. MIRTAZEPINE [Concomitant]
     Active Substance: MIRTAZAPINE
  4. RENAL VITAMIN [Concomitant]
  5. CALCITROL [Concomitant]
     Active Substance: CALCITRIOL
  6. DILTIAZEM. [Concomitant]
     Active Substance: DILTIAZEM
  7. VITAMIN B12 [Concomitant]
     Active Substance: CYANOCOBALAMIN
  8. BACLOFEN. [Suspect]
     Active Substance: BACLOFEN
     Indication: NECK PAIN
     Dosage: ?          QUANTITY:1 TABLET(S);?
     Route: 048
     Dates: start: 20171004, end: 20171004
  9. RENAL VITAMIN [Concomitant]
  10. HYDRALAZINE [Concomitant]
     Active Substance: HYDRALAZINE HYDROCHLORIDE
  11. CARVEDILOL. [Concomitant]
     Active Substance: CARVEDILOL
  12. SIMVASTATIN. [Concomitant]
     Active Substance: SIMVASTATIN

REACTIONS (6)
  - Therapeutic response shortened [None]
  - Altered state of consciousness [None]
  - Toxicity to various agents [None]
  - Somnolence [None]
  - Cardiac arrest [None]
  - Lethargy [None]

NARRATIVE: CASE EVENT DATE: 20171005
